FAERS Safety Report 7126643-2 (Version None)
Quarter: 2010Q4

REPORT INFORMATION
  Report Type: 
  Country: None (occurrence: None)
  Receive Date: 20101129
  Receipt Date: 20101123
  Transmission Date: 20110411
  Serious: Yes (Hospitalization)
  Sender: FDA-Public Use
  Company Number: DK-ROCHE-744139

PATIENT
  Sex: Male

DRUGS (3)
  1. ROACTEMRA [Suspect]
     Indication: POLYARTHRITIS
     Route: 042
     Dates: start: 20091210, end: 20100922
  2. PREDNISOLONE [Concomitant]
     Dates: start: 20091210, end: 20100620
  3. AZATHIOPRINE [Concomitant]
     Dates: start: 20091210, end: 20100922

REACTIONS (1)
  - PULMONARY EMBOLISM [None]
